FAERS Safety Report 5391286-8 (Version None)
Quarter: 2007Q3

REPORT INFORMATION
  Report Type: 
  Country: None (occurrence: None)
  Receive Date: 20070719
  Receipt Date: 20070709
  Transmission Date: 20080115
  Serious: Yes (Other)
  Sender: FDA-Public Use
  Company Number: US-ALLERGAN-0707418US

PATIENT
  Sex: Male

DRUGS (1)
  1. BOTOX [Suspect]
     Indication: MUSCLE SPASTICITY
     Dosage: UNK, SINGLE
     Route: 030

REACTIONS (5)
  - MUSCLE ATROPHY [None]
  - MUSCLE CONTRACTURE [None]
  - MUSCLE TIGHTNESS [None]
  - PARALYSIS [None]
  - TENDON DISORDER [None]
